FAERS Safety Report 19658586 (Version 1)
Quarter: 2021Q3

REPORT INFORMATION
  Report Type: Report from Study
  Country: GB (occurrence: GB)
  Receive Date: 20210804
  Receipt Date: 20210804
  Transmission Date: 20211014
  Serious: Yes (Hospitalization)
  Sender: FDA-Public Use
  Company Number: GB-EISAI MEDICAL RESEARCH-EC-2021-097023

PATIENT
  Age: 55 Year
  Sex: Female
  Weight: 65.6 kg

DRUGS (5)
  1. ERIBULIN [Suspect]
     Active Substance: ERIBULIN
     Indication: TRIPLE NEGATIVE BREAST CANCER
     Dosage: UNKNOWN DOSE AND FREQUENCY
     Route: 042
  2. INCB?086550. [Suspect]
     Active Substance: INCB-086550
     Indication: TRIPLE NEGATIVE BREAST CANCER
     Route: 048
     Dates: start: 20210622, end: 20210712
  3. COCODAMOL [Concomitant]
     Active Substance: ACETAMINOPHEN\CODEINE PHOSPHATE
     Route: 065
     Dates: start: 20210622
  4. PACLITAXEL. [Suspect]
     Active Substance: PACLITAXEL
     Indication: TRIPLE NEGATIVE BREAST CANCER
     Dosage: UNKNOWN DOSE AND FREQUENCY
     Route: 065
  5. ENTECAVIR. [Concomitant]
     Active Substance: ENTECAVIR
     Route: 065
     Dates: start: 20210622

REACTIONS (1)
  - Neuropathy peripheral [Unknown]

NARRATIVE: CASE EVENT DATE: 20210710
